FAERS Safety Report 6584376-5 (Version None)
Quarter: 2010Q1

REPORT INFORMATION
  Report Type: 
  Country: None (occurrence: None)
  Receive Date: 20100216
  Receipt Date: 20100126
  Transmission Date: 20100710
  Serious: No
  Sender: FDA-Public Use
  Company Number: US-ABBOTT-10P-163-0622398-00

PATIENT
  Sex: Female
  Weight: 97.61 kg

DRUGS (12)
  1. SIMCOR [Suspect]
     Indication: BLOOD CHOLESTEROL INCREASED
     Dosage: 500/20 AT NIGHT
     Dates: start: 20091201
  2. NORVASC [Concomitant]
     Indication: DRUG USE FOR UNKNOWN INDICATION
  3. ASPIRIN [Concomitant]
     Indication: DRUG USE FOR UNKNOWN INDICATION
  4. HYDROCHLOROTHIAZIDE [Concomitant]
     Indication: DRUG USE FOR UNKNOWN INDICATION
  5. MIACALCIN [Concomitant]
     Indication: DRUG USE FOR UNKNOWN INDICATION
  6. CA [Concomitant]
     Indication: DRUG USE FOR UNKNOWN INDICATION
  7. VIT E [Concomitant]
     Indication: DRUG USE FOR UNKNOWN INDICATION
  8. VIT C [Concomitant]
     Indication: DRUG USE FOR UNKNOWN INDICATION
  9. OMEGA FISH OIL [Concomitant]
     Indication: DRUG USE FOR UNKNOWN INDICATION
  10. PRILOSEC [Concomitant]
     Indication: DRUG USE FOR UNKNOWN INDICATION
  11. OTHER FORMS OF FISH OIL [Concomitant]
     Indication: DRUG USE FOR UNKNOWN INDICATION
  12. TRAVATAN EYE GTTS [Concomitant]
     Indication: DRUG USE FOR UNKNOWN INDICATION

REACTIONS (1)
  - FLUSHING [None]
